FAERS Safety Report 6497120-7 (Version None)
Quarter: 2009Q4

REPORT INFORMATION
  Report Type: 
  Country: None (occurrence: None)
  Receive Date: 20091215
  Receipt Date: 20090324
  Transmission Date: 20100525
  Serious: No
  Sender: FDA-Public Use
  Company Number: A0775072A

PATIENT
  Age: 63 Year
  Sex: Male

DRUGS (4)
  1. AVODART [Suspect]
     Dosage: .5MG PER DAY
     Route: 048
     Dates: start: 20090318
  2. BENICAR [Concomitant]
  3. XANAX [Concomitant]
  4. ZIAC [Concomitant]

REACTIONS (3)
  - HEADACHE [None]
  - POLLAKIURIA [None]
  - URINARY INCONTINENCE [None]
